FAERS Safety Report 9475327 (Version 1)
Quarter: 2013Q3

REPORT INFORMATION
  Report Type: Spontaneous
  Country: DE (occurrence: None)
  Receive Date: 20130820
  Receipt Date: 20130820
  Transmission Date: 20140515
  Serious: Yes (Other)
  Sender: FDA-Public Use
  Company Number: 1308-1028

PATIENT
  Age: 88 Year
  Sex: Female

DRUGS (1)
  1. EYLEA (AFLIBERCEPT) (INJECTION) (AFLIBERCEPT) [Suspect]
     Indication: AGE-RELATED MACULAR DEGENERATION
     Dosage: INTRAOCULAR
     Dates: start: 20121204

REACTIONS (3)
  - Age-related macular degeneration [None]
  - Head injury [None]
  - Visual acuity reduced [None]
